FAERS Safety Report 19582392 (Version 1)
Quarter: 2021Q3

REPORT INFORMATION
  Report Type: Report from Study
  Country: US (occurrence: US)
  Receive Date: 20210720
  Receipt Date: 20210720
  Transmission Date: 20211014
  Serious: Yes (Death)
  Sender: FDA-Public Use
  Company Number: US-ASTRAZENECA-2021A629019

PATIENT
  Sex: Male
  Weight: 70.3 kg

DRUGS (13)
  1. ATORVASTATIN CALCIUM. [Concomitant]
     Active Substance: ATORVASTATIN CALCIUM
  2. MULTIVITAMINS [Concomitant]
     Active Substance: VITAMINS
  3. VITAMIN B12 [Concomitant]
     Active Substance: CYANOCOBALAMIN
  4. PREDNISONE. [Concomitant]
     Active Substance: PREDNISONE
  5. DIGOXIN. [Concomitant]
     Active Substance: DIGOXIN
  6. MELATONIN [Concomitant]
     Active Substance: MELATONIN
  7. TAGRISSO [Suspect]
     Active Substance: OSIMERTINIB
     Indication: LUNG NEOPLASM MALIGNANT
     Route: 048
     Dates: start: 20210708
  8. ALLOPURINOL. [Concomitant]
     Active Substance: ALLOPURINOL
  9. MAGNESIUM [Concomitant]
     Active Substance: MAGNESIUM
  10. RIBOFLAVIN [Concomitant]
     Active Substance: RIBOFLAVIN
  11. VITAMIN D3 [Concomitant]
     Active Substance: CHOLECALCIFEROL
  12. ELIQUIS [Concomitant]
     Active Substance: APIXABAN
  13. LUTEIN [Concomitant]
     Active Substance: LUTEIN

REACTIONS (1)
  - Death [Fatal]
